FAERS Safety Report 16158289 (Version 1)
Quarter: 2019Q2

REPORT INFORMATION
  Report Type: Spontaneous
  Country: CN (occurrence: CN)
  Receive Date: 20190404
  Receipt Date: 20190404
  Transmission Date: 20190711
  Serious: Yes (Other)
  Sender: FDA-Public Use
  Company Number: CN-PFIZER INC-2019138119

PATIENT
  Age: 62 Year
  Sex: Male
  Weight: 72 kg

DRUGS (3)
  1. CAPECITABINE. [Suspect]
     Active Substance: CAPECITABINE
     Indication: COLON CANCER
     Dosage: 1.5 G, CYCLIC, TWICE DAILY D1-D10
     Dates: start: 20190114
  2. CAMPTO [Suspect]
     Active Substance: IRINOTECAN
     Indication: COLON CANCER
     Dosage: 270 MG, CYCLIC, D1
     Route: 041
     Dates: start: 20190114, end: 20190114
  3. BEVACIZUMAB. [Suspect]
     Active Substance: BEVACIZUMAB
     Indication: COLON CANCER
     Dosage: 300 MG, CYCLIC, D1 Q14D
     Route: 041
     Dates: start: 20190114

REACTIONS (7)
  - Nausea [Unknown]
  - Abdominal pain [Unknown]
  - Vomiting [Unknown]
  - Constipation [Unknown]
  - Subileus [Unknown]
  - Hyperpyrexia [Recovered/Resolved]
  - Granulocyte count decreased [Recovering/Resolving]

NARRATIVE: CASE EVENT DATE: 20190121
